FAERS Safety Report 9409482 (Version 1)
Quarter: 2013Q2

REPORT INFORMATION
  Report Type: Spontaneous
  Country: JP (occurrence: None)
  Receive Date: 20130404
  Receipt Date: 20130404
  Transmission Date: 20140414
  Serious: Yes (Hospitalization)
  Sender: FDA-Public Use
  Company Number: AXC-2013-000088

PATIENT
  Age: 74 Year
  Sex: Male

DRUGS (3)
  1. URSODEOXYCHOLIC ACID [Suspect]
     Route: 048
     Dates: start: 20110624, end: 20111205
  2. NORVASC (AMLODIPINE BESILATE) [Suspect]
  3. DIOVAN (VALSARTAN) [Suspect]

REACTIONS (3)
  - Faecalith [None]
  - Ileal stenosis [None]
  - Ileus [None]
